FAERS Safety Report 7987519-1 (Version None)
Quarter: 2011Q4

REPORT INFORMATION
  Report Type: 
  Country: None (occurrence: None)
  Receive Date: 20111216
  Receipt Date: 20111209
  Transmission Date: 20120403
  Serious: Yes (Other)
  Sender: FDA-Public Use
  Company Number: PHHY2011CN099182

PATIENT
  Age: 9 Year
  Sex: Female

DRUGS (1)
  1. CARBAMAZEPINE [Suspect]
     Indication: EPILEPSY
     Dosage: 250 MG, BID
     Route: 048

REACTIONS (12)
  - PAPULE [None]
  - BLISTER [None]
  - LIP SWELLING [None]
  - ORAL MUCOSA EROSION [None]
  - GINGIVAL BLEEDING [None]
  - PYREXIA [None]
  - RASH GENERALISED [None]
  - DRUG ERUPTION [None]
  - PIGMENTATION DISORDER [None]
  - MOUTH ULCERATION [None]
  - RASH MACULO-PAPULAR [None]
  - EPIDERMOLYSIS BULLOSA [None]
